FAERS Safety Report 9752921 (Version 1)
Quarter: 2013Q4

REPORT INFORMATION
  Report Type: Spontaneous
  Country: US (occurrence: US)
  Receive Date: 20131213
  Receipt Date: 20131213
  Transmission Date: 20140711
  Serious: No
  Sender: FDA-Public Use
  Company Number: US-GLAXOSMITHKLINE-A1039330A

PATIENT
  Age: 61 Year
  Sex: Male

DRUGS (2)
  1. ARZERRA [Suspect]
     Indication: NON-HODGKIN^S LYMPHOMA
     Dosage: 300MG SINGLE DOSE
     Route: 042
     Dates: start: 20130822
  2. NO CONCURRENT MEDICATION [Concomitant]

REACTIONS (8)
  - Infusion related reaction [Recovered/Resolved]
  - Urticaria [Recovered/Resolved]
  - Pharyngeal oedema [Recovered/Resolved]
  - Glassy eyes [Recovered/Resolved]
  - Erythema [Recovered/Resolved]
  - Swelling face [Recovered/Resolved]
  - Pruritus [Recovered/Resolved]
  - Off label use [Recovered/Resolved]
